FAERS Safety Report 21708031 (Version 1)
Quarter: 2022Q4

REPORT INFORMATION
  Report Type: Spontaneous
  Country: US (occurrence: US)
  Receive Date: 20221209
  Receipt Date: 20221209
  Transmission Date: 20230113
  Serious: No
  Sender: FDA-Public Use
  Company Number: US-009507513-2211USA006582

PATIENT

DRUGS (3)
  1. KEYTRUDA [Suspect]
     Active Substance: PEMBROLIZUMAB
  2. INLYTA [Suspect]
     Active Substance: AXITINIB
     Route: 048
  3. CLARITIN [Concomitant]
     Active Substance: LORATADINE
     Dosage: UNK
     Dates: start: 202111

REACTIONS (3)
  - Diarrhoea [Unknown]
  - Nasopharyngitis [Unknown]
  - Rash [Unknown]

NARRATIVE: CASE EVENT DATE: 20211101
